FAERS Safety Report 25166380 (Version 1)
Quarter: 2025Q2

REPORT INFORMATION
  Report Type: Spontaneous
  Country: IT (occurrence: IT)
  Receive Date: 20250407
  Receipt Date: 20250407
  Transmission Date: 20250717
  Serious: Yes (Life-Threatening, Hospitalization, Other)
  Sender: UNICHEM
  Company Number: IT-UNICHEM LABORATORIES LIMITED-UNI-2025-IT-001732

PATIENT

DRUGS (1)
  1. ALLOPURINOL [Suspect]
     Active Substance: ALLOPURINOL
     Indication: Blood creatinine increased
     Route: 065

REACTIONS (8)
  - Hypotension [Recovered/Resolved]
  - Renal impairment [Recovered/Resolved]
  - Electrocardiogram QT prolonged [Recovered/Resolved]
  - Syncope [Recovered/Resolved]
  - Hydronephrosis [Recovered/Resolved]
  - Head injury [Recovered/Resolved]
  - Blood potassium abnormal [Recovered/Resolved]
  - Stevens-Johnson syndrome [Recovered/Resolved]
